FAERS Safety Report 5248644-1 (Version None)
Quarter: 2007Q1

REPORT INFORMATION
  Report Type: 
  Country: None (occurrence: None)
  Receive Date: 20070226
  Receipt Date: 20070226
  Transmission Date: 20070707
  Serious: Yes (Death, Life-Threatening, Hospitalization)
  Sender: FDA-Public Use
  Company Number: None

PATIENT
  Age: 55 Year
  Sex: Female

DRUGS (3)
  1. METHADONE HCL [Suspect]
     Indication: PAIN MANAGEMENT
     Dosage: DAILY PO
     Route: 048
     Dates: start: 20040916, end: 20040930
  2. CITALOPRAM [Suspect]
     Indication: ANXIETY
     Dosage: PO
     Route: 048
  3. CITALOPRAM [Suspect]
     Indication: DEPRESSION
     Dosage: PO
     Route: 048

REACTIONS (4)
  - CARDIAC ARREST [None]
  - DRUG TOXICITY [None]
  - LOSS OF CONSCIOUSNESS [None]
  - RESPIRATORY ARREST [None]
